FAERS Safety Report 19882332 (Version 2)
Quarter: 2021Q4

REPORT INFORMATION
  Report Type: Report from Study
  Country: IE (occurrence: IE)
  Receive Date: 20210924
  Receipt Date: 20211008
  Transmission Date: 20220303
  Serious: Yes (Hospitalization)
  Sender: FDA-Public Use
  Company Number: IE-PFIZER INC-202101177149

PATIENT
  Weight: 26.2 kg

DRUGS (19)
  1. GEMTUZUMAB OZOGAMICIN [Suspect]
     Active Substance: GEMTUZUMAB OZOGAMICIN
     Dosage: 3 MG (OTHERS)
     Route: 042
     Dates: start: 20210906, end: 20210906
  2. MITOXANTRONE HYDROCHLORIDE [Suspect]
     Active Substance: MITOXANTRONE HYDROCHLORIDE
     Dosage: 12 MG/M2, 1X/DAY
     Route: 042
     Dates: start: 20210901, end: 20210904
  3. PIPERACILLIN SODIUM\TAZOBACTAM SODIUM [Concomitant]
     Active Substance: PIPERACILLIN SODIUM\TAZOBACTAM SODIUM
     Indication: Antibiotic therapy
     Dosage: 2.5 G, 4X/DAY
     Dates: start: 20210830, end: 20210906
  4. PIPERACILLIN SODIUM\TAZOBACTAM SODIUM [Concomitant]
     Active Substance: PIPERACILLIN SODIUM\TAZOBACTAM SODIUM
     Dosage: 2.5 MG, 4X/DAY
     Dates: start: 20210906
  5. GENTAMICIN [Concomitant]
     Active Substance: GENTAMICIN
     Indication: Antibiotic therapy
     Dosage: 180 MG, 1X/DAY
     Dates: start: 20210831, end: 20210907
  6. AMBISOME [Concomitant]
     Active Substance: AMPHOTERICIN B
     Indication: Antifungal treatment
     Dosage: 28 MG, ALTERNATE DAY
     Dates: start: 20210901, end: 20210906
  7. SULFAMETHOXAZOLE\TRIMETHOPRIM [Concomitant]
     Active Substance: SULFAMETHOXAZOLE\TRIMETHOPRIM
     Indication: Antibiotic therapy
     Dosage: 480 MG, 2X/DAY
     Dates: start: 20210901, end: 20210906
  8. ONDANSETRON [Concomitant]
     Active Substance: ONDANSETRON
     Indication: Antiemetic supportive care
     Dosage: 5 MG, 3X/DAY
     Dates: start: 20210901
  9. ORAMORPH SR SUSTAINED RELEASE [Concomitant]
     Active Substance: MORPHINE SULFATE
     Indication: Pain
     Dosage: 5 MG, 4X/DAY
     Dates: start: 20210901, end: 20210901
  10. OMEPRAZOLE [Concomitant]
     Active Substance: OMEPRAZOLE
     Indication: Gastrooesophageal reflux disease
     Dosage: 20 MG, 1X/DAY
     Dates: start: 20210905
  11. CYCLIZINE [Concomitant]
     Active Substance: CYCLIZINE
     Indication: Antiemetic supportive care
     Dosage: 25 MG, 3X/DAY
     Dates: start: 20210906
  12. HEPARIN SODIUM [Concomitant]
     Active Substance: HEPARIN SODIUM
     Indication: Catheter management
     Dosage: 2.5 ML, AS NEEDED
     Dates: start: 20210901
  13. VITAMIN K [Concomitant]
     Active Substance: PHYTONADIONE
     Indication: Vitamin supplementation
     Dosage: 8 MG, AS NEEDED
     Dates: start: 20210831
  14. HYDROCORTISONE [Concomitant]
     Active Substance: HYDROCORTISONE
     Indication: Adrenal insufficiency
     Dosage: 100 MG, AS NEEDED
     Dates: start: 20210906
  15. CHLORPHENIRAMINE MALEATE [Concomitant]
     Active Substance: CHLORPHENIRAMINE MALEATE
     Indication: Antiallergic therapy
     Dosage: 5 MG, AS NEEDED
     Dates: start: 20210906
  16. FUROSEMIDE [Concomitant]
     Active Substance: FUROSEMIDE
     Indication: Diuretic therapy
     Dosage: 20 MG, AS NEEDED
     Dates: start: 20210908
  17. ACETAMINOPHEN [Concomitant]
     Active Substance: ACETAMINOPHEN
     Indication: Pain
     Dosage: 390 MG, 4X/DAY
     Dates: start: 20210831, end: 20210901
  18. ACETAMINOPHEN [Concomitant]
     Active Substance: ACETAMINOPHEN
     Dosage: 420 MG, 4X/DAY
     Dates: start: 20210901, end: 20210902
  19. ACETAMINOPHEN [Concomitant]
     Active Substance: ACETAMINOPHEN
     Dosage: 400 MG, AS NEEDED
     Dates: start: 20210906

REACTIONS (1)
  - Hypersensitivity [Recovered/Resolved]

NARRATIVE: CASE EVENT DATE: 20210906
